FAERS Safety Report 5648238-X (Version None)
Quarter: 2008Q1

REPORT INFORMATION
  Report Type: 
  Country: None (occurrence: None)
  Receive Date: 20080229
  Receipt Date: 20080219
  Transmission Date: 20080703
  Serious: Yes (Hospitalization)
  Sender: FDA-Public Use
  Company Number: 2007BI027298

PATIENT
  Age: 56 Year
  Sex: Male

DRUGS (1)
  1. AVONEX [Suspect]
     Indication: MULTIPLE SCLEROSIS
     Dosage: 30 UG;QW;IM
     Route: 030
     Dates: start: 20020101

REACTIONS (4)
  - GANGRENE [None]
  - OSTEOMYELITIS [None]
  - STAPHYLOCOCCAL INFECTION [None]
  - TOE AMPUTATION [None]
